FAERS Safety Report 18890034 (Version 1)
Quarter: 2021Q1

REPORT INFORMATION
  Report Type: Spontaneous
  Country: US (occurrence: US)
  Receive Date: 20210214
  Receipt Date: 20210214
  Transmission Date: 20210420
  Serious: No
  Sender: FDA-Public Use
  Company Number: US-TEVA-2021-US-1876405

PATIENT
  Age: 67 Year
  Sex: Female

DRUGS (2)
  1. GENERIC PREDNISONE [Suspect]
     Active Substance: PREDNISONE
     Indication: ADVERSE DRUG REACTION
  2. GENERIC PREDNISONE [Suspect]
     Active Substance: PREDNISONE
     Indication: CROHN^S DISEASE
     Dosage: 5 MILLIGRAM DAILY;
     Route: 065

REACTIONS (5)
  - Somnolence [Unknown]
  - Wrong technique in product usage process [Unknown]
  - Dizziness [Unknown]
  - Feeling abnormal [Unknown]
  - Gait disturbance [Unknown]
